FAERS Safety Report 4840904-9 (Version None)
Quarter: 2005Q4

REPORT INFORMATION
  Report Type: 
  Country: None (occurrence: None)
  Receive Date: 20051130
  Receipt Date: 20051118
  Transmission Date: 20060501
  Serious: Yes (Other)
  Sender: FDA-Public Use
  Company Number: PHBS2005BR17121

PATIENT
  Sex: Female
  Weight: 62 kg

DRUGS (1)
  1. SYNTOCINON [Suspect]
     Indication: BREAST ENGORGEMENT
     Route: 045

REACTIONS (1)
  - ABORTION [None]
